FAERS Safety Report 15140253 (Version 1)
Quarter: 2018Q3

REPORT INFORMATION
  Report Type: Spontaneous
  Country: DE (occurrence: DE)
  Receive Date: 20180713
  Receipt Date: 20180713
  Transmission Date: 20181010
  Serious: Yes (Hospitalization, Other)
  Sender: FDA-Public Use
  Company Number: DE-SA-2018SA163319

PATIENT
  Age: 73 Year
  Sex: Male
  Weight: 94 kg

DRUGS (12)
  1. FOLINIC ACID [Suspect]
     Active Substance: LEUCOVORIN
     Indication: COLORECTAL CANCER METASTATIC
     Dosage: 400 MG
     Route: 042
     Dates: start: 20130409, end: 20131127
  2. 5?FU [FLUOROURACIL] [Suspect]
     Active Substance: FLUOROURACIL
     Indication: COLORECTAL CANCER METASTATIC
     Dosage: 800 MG, QW
     Dates: start: 20130409, end: 20140121
  3. BEVACIZUMAB. [Suspect]
     Active Substance: BEVACIZUMAB
     Dosage: UNK
     Route: 042
     Dates: start: 20130618
  4. LISINOPRIL. [Concomitant]
     Active Substance: LISINOPRIL
     Indication: HYPERTENSION
     Dosage: UNK UNK, QD
     Route: 048
  5. METFORMIN HYDROCHLORIDE. [Concomitant]
     Active Substance: METFORMIN HYDROCHLORIDE
     Indication: DIABETES MELLITUS
     Dosage: 2000 MG, QD
     Route: 048
  6. 5?FU [FLUOROURACIL] [Suspect]
     Active Substance: FLUOROURACIL
     Dosage: 2400 UNK
     Route: 042
     Dates: start: 20130409, end: 20140122
  7. OXALIPLATIN. [Suspect]
     Active Substance: OXALIPLATIN
     Indication: COLORECTAL CANCER METASTATIC
     Dosage: 170 MG, QW
     Route: 042
     Dates: start: 20130409, end: 20131105
  8. FOLINIC ACID [Suspect]
     Active Substance: LEUCOVORIN
     Dosage: 400 MG, QW
     Route: 042
     Dates: start: 20140107, end: 20140122
  9. BEVACIZUMAB. [Suspect]
     Active Substance: BEVACIZUMAB
     Indication: COLORECTAL CANCER METASTATIC
     Dosage: 5 MG/KG, QW
     Route: 042
     Dates: start: 20130409, end: 20130521
  10. FOLINIC ACID [Suspect]
     Active Substance: LEUCOVORIN
     Dosage: 800 MG, QW
     Route: 042
     Dates: start: 20131210, end: 20131211
  11. METFORMIN HYDROCHLORIDE. [Concomitant]
     Active Substance: METFORMIN HYDROCHLORIDE
     Dosage: 2000 UNK
     Route: 048
  12. EUTHYROX [Concomitant]
     Active Substance: LEVOTHYROXINE SODIUM
     Indication: HYPOTHYROIDISM
     Dosage: 100 UG, QD
     Route: 048

REACTIONS (4)
  - Glycosuria [Recovered/Resolved]
  - Cerebrovascular accident [Recovered/Resolved]
  - Proteinuria [Recovered/Resolved]
  - Aphasia [Recovered/Resolved]

NARRATIVE: CASE EVENT DATE: 20130423
